FAERS Safety Report 14661244 (Version 1)
Quarter: 2018Q1

REPORT INFORMATION
  Report Type: Spontaneous
  Country: US (occurrence: US)
  Receive Date: 20180320
  Receipt Date: 20180320
  Transmission Date: 20180509
  Serious: Yes (Other)
  Sender: FDA-Public Use
  Company Number: US-LUNDBECK-DKLU2045767

PATIENT
  Age: 37 Year
  Sex: Female

DRUGS (5)
  1. NORTHERA [Suspect]
     Active Substance: DROXIDOPA
     Indication: ORTHOSTATIC HYPOTENSION
  2. NORTHERA [Suspect]
     Active Substance: DROXIDOPA
     Indication: DIZZINESS
  3. NORTHERA [Suspect]
     Active Substance: DROXIDOPA
     Indication: SYNCOPE
  4. NORTHERA [Suspect]
     Active Substance: DROXIDOPA
     Indication: HYPOTENSION
  5. NORTHERA [Suspect]
     Active Substance: DROXIDOPA
     Indication: AUTONOMIC NEUROPATHY
     Route: 048
     Dates: start: 201801, end: 201801

REACTIONS (5)
  - Seizure [Unknown]
  - Dyspnoea [Unknown]
  - Hypoaesthesia oral [Unknown]
  - Pruritus [Unknown]
  - Chest pain [Unknown]

NARRATIVE: CASE EVENT DATE: 201801
